FAERS Safety Report 23698919 (Version 2)
Quarter: 2024Q3

REPORT INFORMATION
  Report Type: Report from Study
  Country: US (occurrence: US)
  Receive Date: 20240402
  Receipt Date: 20240813
  Transmission Date: 20241017
  Serious: No
  Sender: SANOFI AVENTIS
  Company Number: US-SA-SAC20240321000877

PATIENT
  Age: 17 Year
  Sex: Male

DRUGS (1)
  1. TEPLIZUMAB-MZWV [Suspect]
     Active Substance: TEPLIZUMAB-MZWV
     Dosage: UNK; UNK; LATE JANUARY AND EARLY FEBRUARY 2023
     Dates: start: 2023, end: 2023

REACTIONS (1)
  - Fatigue [Unknown]

NARRATIVE: CASE EVENT DATE: 20230101
